FAERS Safety Report 16196334 (Version 2)
Quarter: 2020Q1

REPORT INFORMATION
  Report Type: Report from Study
  Country: JP (occurrence: JP)
  Receive Date: 20190415
  Receipt Date: 20200107
  Transmission Date: 20200409
  Serious: Yes (Death)
  Sender: FDA-Public Use
  Company Number: JP-EISAI MEDICAL RESEARCH-EC-2019-054910

PATIENT
  Age: 87 Year
  Sex: Male
  Weight: 54 kg

DRUGS (8)
  1. AMINOLEBAN EN [Concomitant]
     Active Substance: UNSPECIFIED INGREDIENT
  2. SELARA [Concomitant]
     Active Substance: EPLERENONE
  3. LASIX [Concomitant]
     Active Substance: FUROSEMIDE
  4. LIVACT [Concomitant]
     Active Substance: AMINO ACIDS, SOURCE UNSPECIFIED
  5. LENVIMA [Suspect]
     Active Substance: LENVATINIB
     Dosage: EVERY 4 OR 5 DAYS
     Route: 048
     Dates: start: 20190221, end: 20190702
  6. AZOSEMIDE [Concomitant]
     Active Substance: AZOSEMIDE
  7. LENVIMA [Suspect]
     Active Substance: LENVATINIB
     Indication: HEPATOCELLULAR CARCINOMA
     Route: 048
     Dates: start: 20181115, end: 20181219
  8. LENVIMA [Suspect]
     Active Substance: LENVATINIB
     Route: 048
     Dates: start: 20190107, end: 20190220

REACTIONS (1)
  - Death [Fatal]

NARRATIVE: CASE EVENT DATE: 20191120
